FAERS Safety Report 11036628 (Version 1)
Quarter: 2015Q2

REPORT INFORMATION
  Report Type: Spontaneous
  Country: US (occurrence: US)
  Receive Date: 20150416
  Receipt Date: 20150416
  Transmission Date: 20150821
  Serious: Yes (Other)
  Sender: FDA-Public Use
  Company Number: US-AMGEN-USASP2015035781

PATIENT
  Age: 58 Year
  Sex: Male

DRUGS (2)
  1. ENBREL [Suspect]
     Active Substance: ETANERCEPT
     Indication: PSORIATIC ARTHROPATHY
     Dosage: UNK
     Route: 065
  2. ENBREL [Suspect]
     Active Substance: ETANERCEPT
     Indication: OSTEOARTHRITIS

REACTIONS (13)
  - Abasia [Recovered/Resolved]
  - Exostosis [Unknown]
  - Balance disorder [Unknown]
  - Muscle disorder [Unknown]
  - Choking [Unknown]
  - Vitamin D deficiency [Unknown]
  - Visual impairment [Unknown]
  - Acquired diaphragmatic eventration [Unknown]
  - Nerve injury [Unknown]
  - Injection site pain [Unknown]
  - Disability [Unknown]
  - Spinal osteoarthritis [Unknown]
  - Impaired work ability [Unknown]

NARRATIVE: CASE EVENT DATE: 2006
